FAERS Safety Report 9549399 (Version 1)
Quarter: 2013Q3

REPORT INFORMATION
  Report Type: Spontaneous
  Country: FR (occurrence: None)
  Receive Date: 20130919
  Receipt Date: 20130919
  Transmission Date: 20140515
  Serious: Yes (Hospitalization)
  Sender: FDA-Public Use
  Company Number: 1884476

PATIENT
  Age: 67 Year
  Sex: Female

DRUGS (3)
  1. CARBOPLATIN [Suspect]
     Route: 041
     Dates: start: 20120430, end: 20120430
  2. METHYLPREDNISOLONE MERK [Concomitant]
  3. ZOPHREN [Concomitant]

REACTIONS (3)
  - Feeling hot [None]
  - Hypersensitivity [None]
  - Infusion related reaction [None]
